FAERS Safety Report 9915791 (Version 1)
Quarter: 2014Q1

REPORT INFORMATION
  Report Type: Spontaneous
  Country: GB (occurrence: None)
  Receive Date: 20140218
  Receipt Date: 20140218
  Transmission Date: 20141002
  Serious: Yes (Other)
  Sender: FDA-Public Use
  Company Number: 2014AP001211

PATIENT
  Age: 38 Year
  Sex: Female

DRUGS (1)
  1. PERINDOPRIL ERBUMINE [Suspect]
     Dates: start: 20131010

REACTIONS (1)
  - Stomatitis [None]
